FAERS Safety Report 5163700-4 (Version None)
Quarter: 2006Q4

REPORT INFORMATION
  Report Type: 
  Country: None (occurrence: None)
  Receive Date: 20061127
  Receipt Date: 20061127
  Transmission Date: 20070319
  Serious: Yes (Other)
  Sender: FDA-Public Use
  Company Number: None

PATIENT
  Age: 74 Year
  Sex: Male

DRUGS (10)
  1. LIPITOR [Suspect]
     Indication: HYPERLIPIDAEMIA
     Dosage: 40 MG OD PO
     Route: 048
  2. LISINOPRIL [Concomitant]
  3. POTASSIUM ACETATE [Concomitant]
  4. ASIX [Concomitant]
  5. AMARYL [Concomitant]
  6. ZETIA [Concomitant]
  7. SYNTHROID [Concomitant]
  8. FOLTX [Concomitant]
  9. ASPIRIN [Concomitant]
  10. LANTUS [Concomitant]

REACTIONS (1)
  - LIVER FUNCTION TEST ABNORMAL [None]
